FAERS Safety Report 9864013 (Version 1)
Quarter: 2014Q1

REPORT INFORMATION
  Report Type: Report from Study
  Country: US (occurrence: US)
  Receive Date: 20140203
  Receipt Date: 20140203
  Transmission Date: 20141002
  Serious: Yes (Hospitalization, Other)
  Sender: FDA-Public Use
  Company Number: US-ABBVIE-14P-163-1194314-00

PATIENT
  Sex: Male

DRUGS (1)
  1. HUMIRA [Suspect]
     Indication: CROHN^S DISEASE
     Dates: start: 2011, end: 2013

REACTIONS (5)
  - Patient-device incompatibility [Unknown]
  - Weight decreased [Unknown]
  - Intestinal resection [Recovered/Resolved]
  - Pyrexia [Unknown]
  - Crohn^s disease [Unknown]
